FAERS Safety Report 8493276-5 (Version None)
Quarter: 2012Q3

REPORT INFORMATION
  Report Type: 
  Country: None (occurrence: None)
  Receive Date: 20120706
  Receipt Date: 20120628
  Transmission Date: 20120928
  Serious: Yes (Hospitalization)
  Sender: FDA-Public Use
  Company Number: ES-ABBOTT-12P-144-0951928-01

PATIENT
  Age: 31 Year
  Sex: Male

DRUGS (7)
  1. HUMIRA [Suspect]
     Route: 058
     Dates: end: 20111220
  2. ACETAMINOPHEN [Concomitant]
     Indication: HEADACHE
     Dates: start: 20090616
  3. HUMIRA [Suspect]
     Route: 058
  4. HUMIRA [Suspect]
     Route: 058
     Dates: start: 20120510
  5. AZATHIOPRINE [Concomitant]
     Dates: start: 20110921
  6. HUMIRA [Suspect]
     Indication: CROHN'S DISEASE
     Route: 058
     Dates: start: 20090515, end: 20090515
  7. AZATHIOPRINE [Concomitant]
     Indication: CROHN'S DISEASE
     Dates: start: 20070807, end: 20090914

REACTIONS (1)
  - CROHN'S DISEASE [None]
